FAERS Safety Report 8376114-0 (Version None)
Quarter: 2012Q2

REPORT INFORMATION
  Report Type: 
  Country: None (occurrence: None)
  Receive Date: 20120522
  Receipt Date: 20120518
  Transmission Date: 20120825
  Serious: Yes (Other)
  Sender: FDA-Public Use
  Company Number: PHHY2012US043208

PATIENT

DRUGS (3)
  1. PREDNISONE [Concomitant]
     Indication: HEART TRANSPLANT
  2. MYCOPHENOLATE MOFETIL [Concomitant]
     Indication: HEART TRANSPLANT
  3. CYCLOSPORINE [Suspect]
     Indication: HEART TRANSPLANT

REACTIONS (3)
  - CARDIAC FAILURE [None]
  - LEFT VENTRICULAR DYSFUNCTION [None]
  - HEART TRANSPLANT REJECTION [None]
